FAERS Safety Report 21031835 (Version 1)
Quarter: 2022Q3

REPORT INFORMATION
  Report Type: Spontaneous
  Country: US (occurrence: None)
  Receive Date: 20220701
  Receipt Date: 20220701
  Transmission Date: 20221027
  Serious: No
  Sender: FDA-Public Use
  Company Number: US-ROCHE-3062139

PATIENT

DRUGS (1)
  1. ACTEMRA [Suspect]
     Active Substance: TOCILIZUMAB
     Indication: Product used for unknown indication
     Route: 065

REACTIONS (6)
  - Stomatitis [Unknown]
  - Tongue ulceration [Unknown]
  - Noninfective gingivitis [Unknown]
  - Nausea [Unknown]
  - Headache [Unknown]
  - Abdominal pain upper [Unknown]
